FAERS Safety Report 6502454-3 (Version None)
Quarter: 2009Q4

REPORT INFORMATION
  Report Type: 
  Country: None (occurrence: None)
  Receive Date: 20091214
  Receipt Date: 20091203
  Transmission Date: 20100525
  Serious: Yes (Other)
  Sender: FDA-Public Use
  Company Number: 2009SP029233

PATIENT
  Age: 67 Year
  Sex: Male

DRUGS (1)
  1. ONCOTICE [Suspect]
     Indication: DRUG USE FOR UNKNOWN INDICATION
     Dosage: INVES
     Dates: start: 20091006

REACTIONS (5)
  - CYSTITIS [None]
  - HYPERSENSITIVITY [None]
  - INTERSTITIAL LUNG DISEASE [None]
  - MALAISE [None]
  - VOMITING [None]
